FAERS Safety Report 11996473 (Version 4)
Quarter: 2018Q2

REPORT INFORMATION
  Report Type: Report from Study
  Country: KR (occurrence: KR)
  Receive Date: 20160203
  Receipt Date: 20180611
  Transmission Date: 20180711
  Serious: Yes (Death, Hospitalization)
  Sender: FDA-Public Use
  Company Number: KR-EISAI MEDICAL RESEARCH-EC-2016-014095

PATIENT
  Age: 61 Year
  Sex: Female
  Weight: 74.6 kg

DRUGS (11)
  1. ZANAPAM [Concomitant]
  2. LYRICA [Concomitant]
     Active Substance: PREGABALIN
  3. IRCODON [Concomitant]
     Active Substance: OXYCODONE HYDROCHLORIDE
  4. GASMOTIN [Concomitant]
     Active Substance: MOSAPRIDE CITRATE
  5. APROVEL [Concomitant]
     Active Substance: IRBESARTAN
  6. HALAVEN [Suspect]
     Active Substance: ERIBULIN MESYLATE
     Indication: BREAST CANCER METASTATIC
     Route: 041
     Dates: start: 20151201, end: 20151208
  7. HALAVEN [Suspect]
     Active Substance: ERIBULIN MESYLATE
     Route: 041
     Dates: start: 20151224, end: 20160128
  8. CURAN [Concomitant]
     Active Substance: RANITIDINE HYDROCHLORIDE
  9. PHAZYME [Concomitant]
     Active Substance: DIMETHICONE 410
  10. JURNISTA [Concomitant]
     Active Substance: HYDROMORPHONE HYDROCHLORIDE
  11. NIMODIPIN BORYUNG [Concomitant]

REACTIONS (2)
  - Neuropathy peripheral [Not Recovered/Not Resolved]
  - Leukopenia [Recovered/Resolved]

NARRATIVE: CASE EVENT DATE: 20160131
